FAERS Safety Report 4542318-8 (Version None)
Quarter: 2004Q4

REPORT INFORMATION
  Report Type: 
  Country: None (occurrence: None)
  Receive Date: 20041229
  Receipt Date: 20041221
  Transmission Date: 20050328
  Serious: Yes (Other)
  Sender: FDA-Public Use
  Company Number: 003802

PATIENT
  Sex: Female

DRUGS (3)
  1. MEDROXYPROGESTERONE [Suspect]
     Dosage: ORAL
     Route: 048
     Dates: start: 20040712, end: 20040601
  2. CENESTIN [Suspect]
     Dosage: ORAL
     Route: 048
     Dates: start: 20010712, end: 20020601
  3. PROMETRIUM [Suspect]
     Dates: start: 20011221, end: 20040601

REACTIONS (2)
  - BREAST CANCER [None]
  - BREAST HYPERPLASIA [None]
